FAERS Safety Report 13132879 (Version 1)
Quarter: 2017Q1

REPORT INFORMATION
  Report Type: Spontaneous
  Country: US (occurrence: US)
  Receive Date: 20170120
  Receipt Date: 20170120
  Transmission Date: 20170428
  Serious: Yes (Other)
  Sender: FDA-Public Use
  Company Number: US-GLENMARK PHARMACEUTICALS-2017GMK025903

PATIENT
  Age: 65 Year
  Sex: Male

DRUGS (10)
  1. ACYCLOVIR                          /00587301/ [Concomitant]
     Active Substance: ACYCLOVIR
     Indication: PROPHYLAXIS
     Dosage: 800 MG, BID
     Route: 048
     Dates: start: 20150717
  2. MICAFUNGIN [Concomitant]
     Active Substance: MICAFUNGIN
     Indication: PROPHYLAXIS
     Dosage: 50 MG, QD
     Route: 065
  3. HYDROMORPHONE [Concomitant]
     Active Substance: HYDROMORPHONE
     Indication: STOMATITIS
     Dosage: UNK
     Route: 042
     Dates: start: 20150726
  4. SIROLIMUS. [Interacting]
     Active Substance: SIROLIMUS
     Dosage: 4 MG, QD
     Route: 065
     Dates: start: 20150717, end: 20150804
  5. CLOTRIMAZOLE. [Suspect]
     Active Substance: CLOTRIMAZOLE
     Indication: ORAL CANDIDIASIS
     Dosage: 5 TIMES DAILY, TROCHES
     Route: 048
     Dates: start: 20150801, end: 20150804
  6. TACROLIMUS. [Interacting]
     Active Substance: TACROLIMUS
     Indication: PROPHYLAXIS AGAINST GRAFT VERSUS HOST DISEASE
     Dosage: 24-HOUR CONTINUOUS INTRAVENOUS INFUSION
     Route: 041
     Dates: start: 20150714, end: 20150728
  7. VANCOMYCIN [Concomitant]
     Active Substance: VANCOMYCIN
     Indication: CLOSTRIDIUM DIFFICILE COLITIS
     Dosage: UNK
     Route: 065
     Dates: start: 20150715
  8. SIROLIMUS. [Interacting]
     Active Substance: SIROLIMUS
     Indication: PROPHYLAXIS AGAINST GRAFT VERSUS HOST DISEASE
     Dosage: LODING DOSE
     Route: 065
     Dates: start: 20150716
  9. CIPROFLOXACIN. [Concomitant]
     Active Substance: CIPROFLOXACIN
     Indication: PROPHYLAXIS
     Dosage: 400 MG, BID
     Route: 048
     Dates: start: 20150717
  10. TACROLIMUS. [Interacting]
     Active Substance: TACROLIMUS
     Dosage: UNK
     Route: 048
     Dates: start: 20150728, end: 20150804

REACTIONS (3)
  - Drug interaction [Recovered/Resolved]
  - Acute kidney injury [Recovered/Resolved]
  - Drug level above therapeutic [Recovered/Resolved]

NARRATIVE: CASE EVENT DATE: 201508
